FAERS Safety Report 7337377-3 (Version None)
Quarter: 2011Q1

REPORT INFORMATION
  Report Type: 
  Country: None (occurrence: None)
  Receive Date: 20110222
  Receipt Date: 20110124
  Transmission Date: 20110831
  Serious: Yes (Hospitalization)
  Sender: FDA-Public Use
  Company Number: 2011MA001391

PATIENT
  Age: 61 Year
  Sex: Female

DRUGS (6)
  1. IMDUR [Concomitant]
  2. VENLAFAXINE HYDROCHLORIDE [Suspect]
     Indication: DEPRESSION
     Dosage: 150 MG; PO
     Route: 048
     Dates: start: 20100916, end: 20101016
  3. SOBRIL [Concomitant]
  4. ZOLPIDEM TARTRATE [Concomitant]
  5. LEVOTHYROXINE SODIUM [Concomitant]
  6. TROMBYL [Concomitant]

REACTIONS (2)
  - FATIGUE [None]
  - TRANSAMINASES INCREASED [None]
